FAERS Safety Report 4730307-X (Version None)
Quarter: 2005Q3

REPORT INFORMATION
  Report Type: 
  Country: None (occurrence: None)
  Receive Date: 20050801
  Receipt Date: 20050721
  Transmission Date: 20060218
  Serious: Yes (Hospitalization)
  Sender: FDA-Public Use
  Company Number: US-MERCK-0507USA03429

PATIENT
  Age: 74 Year
  Sex: Female

DRUGS (3)
  1. FOSAMAX [Suspect]
     Route: 048
  2. HYDROCHLOROTHIAZIDE AND SPIRONOLACTONE [Concomitant]
     Route: 065
     Dates: start: 19700101
  3. NITROFURANTOIN [Concomitant]
     Route: 065

REACTIONS (5)
  - CARDIAC MURMUR [None]
  - HAEMODIALYSIS [None]
  - NEPHRITIS INTERSTITIAL [None]
  - ORAL MUCOSAL DISORDER [None]
  - RENAL FAILURE ACUTE [None]
